FAERS Safety Report 18033746 (Version 4)
Quarter: 2022Q2

REPORT INFORMATION
  Report Type: Spontaneous
  Country: JP (occurrence: JP)
  Receive Date: 20200716
  Receipt Date: 20220523
  Transmission Date: 20220720
  Serious: Yes (Death, Other)
  Sender: FDA-Public Use
  Company Number: JP-JAZZ-2020-JP-008910

PATIENT
  Age: 70 Year
  Sex: Male
  Weight: 52 kg

DRUGS (1)
  1. DEFITELIO [Suspect]
     Active Substance: DEFIBROTIDE SODIUM
     Indication: Venoocclusive liver disease
     Dosage: 800 MG/DAY
     Route: 042
     Dates: start: 20200704, end: 20200708

REACTIONS (4)
  - Mucosal haemorrhage [Fatal]
  - Pulmonary haemorrhage [Fatal]
  - Cerebral haemorrhage [Fatal]
  - Central nervous system viral infection [Not Recovered/Not Resolved]

NARRATIVE: CASE EVENT DATE: 20200621
